FAERS Safety Report 20785756 (Version 2)
Quarter: 2022Q3

REPORT INFORMATION
  Report Type: Spontaneous
  Country: AR (occurrence: AR)
  Receive Date: 20220504
  Receipt Date: 20220906
  Transmission Date: 20221026
  Serious: Yes (Other)
  Sender: FDA-Public Use
  Company Number: AR-PFIZER INC-202101063629

PATIENT
  Age: 64 Year
  Sex: Female

DRUGS (3)
  1. ENBREL [Suspect]
     Active Substance: ETANERCEPT
     Indication: Rheumatoid arthritis
     Dosage: 50 MG, BI-WEEKLY
     Route: 065
     Dates: start: 20140317
  2. ENBREL [Suspect]
     Active Substance: ETANERCEPT
     Dosage: 50 MG, BI-WEEKLY
     Route: 065
     Dates: start: 20140317
  3. ENBREL [Suspect]
     Active Substance: ETANERCEPT
     Dosage: 50 MG
     Route: 065
     Dates: start: 202208

REACTIONS (4)
  - Arthropathy [Unknown]
  - Product administration interrupted [Unknown]
  - Off label use [Unknown]
  - Pain [Not Recovered/Not Resolved]

NARRATIVE: CASE EVENT DATE: 20140317
